FAERS Safety Report 5119895-1 (Version None)
Quarter: 2006Q4

REPORT INFORMATION
  Report Type: 
  Country: None (occurrence: None)
  Receive Date: 20061003
  Receipt Date: 20060919
  Transmission Date: 20070319
  Serious: Yes (Hospitalization)
  Sender: FDA-Public Use
  Company Number: US-ABBOTT-06P-163-0344397-00

PATIENT
  Sex: Female
  Weight: 96 kg

DRUGS (14)
  1. SYNTHROID [Suspect]
     Indication: HYPOTHYROIDISM
     Route: 048
     Dates: start: 19930101, end: 20030101
  2. SYNTHROID [Suspect]
     Route: 048
     Dates: start: 20060923, end: 20060925
  3. LEVOTHYROXINE SODIUM [Suspect]
     Indication: DRUG USE FOR UNKNOWN INDICATION
     Dates: end: 20060923
  4. LEVOTHYROXINE SODIUM [Suspect]
     Dates: start: 20060925
  5. GLUCOPHAGE [Concomitant]
     Indication: DIABETES MELLITUS
     Route: 048
  6. ENALAPRIL MALEATE [Concomitant]
     Indication: BLOOD PRESSURE
     Route: 048
  7. CARISOPRODOL [Concomitant]
     Indication: MUSCLE SPASMS
     Route: 048
  8. PANTOPRAZOLE SODIUM [Concomitant]
     Indication: GASTROINTESTINAL DISORDER
     Route: 048
  9. DIOVAN [Concomitant]
     Indication: BLOOD PRESSURE
     Route: 048
  10. HYDROXYCHLOROQUINE PHOSPHATE [Concomitant]
     Indication: SYSTEMIC LUPUS ERYTHEMATOSUS
     Route: 048
  11. FUROSEMIDE [Concomitant]
     Indication: FLUID RETENTION
     Route: 048
  12. TRAMADOL HYDROCHLORIDE [Concomitant]
     Indication: PAIN
     Route: 048
  13. HYDROCODONE [Concomitant]
     Indication: PAIN
     Route: 048
  14. IBUPROFEN [Concomitant]
     Indication: PAIN
     Route: 048

REACTIONS (6)
  - BLADDER CANCER [None]
  - BLOOD PRESSURE INCREASED [None]
  - HEART RATE INCREASED [None]
  - INSOMNIA [None]
  - PSYCHOMOTOR HYPERACTIVITY [None]
  - RESTLESSNESS [None]
